FAERS Safety Report 15452254 (Version 2)
Quarter: 2018Q4

REPORT INFORMATION
  Report Type: Spontaneous
  Country: GR (occurrence: GR)
  Receive Date: 20181001
  Receipt Date: 20181010
  Transmission Date: 20190204
  Serious: Yes (Other)
  Sender: FDA-Public Use
  Company Number: GR-PFIZER INC-2018388023

PATIENT
  Age: 47 Year
  Sex: Female

DRUGS (1)
  1. MEDROL [Suspect]
     Active Substance: METHYLPREDNISOLONE
     Indication: EAR INFECTION
     Dosage: 16 MG 1X3, 3X/DAY

REACTIONS (6)
  - Endometriosis [Unknown]
  - Product use in unapproved indication [Unknown]
  - Ovarian abscess [Unknown]
  - Sepsis [Unknown]
  - Incorrect product administration duration [Unknown]
  - Salpingitis [Unknown]
